FAERS Safety Report 8285007-9 (Version None)
Quarter: 2012Q2

REPORT INFORMATION
  Report Type: 
  Country: None (occurrence: None)
  Receive Date: 20120413
  Receipt Date: 20120217
  Transmission Date: 20120825
  Serious: No
  Sender: FDA-Public Use
  Company Number: US-ASTRAZENECA-2012SE08650

PATIENT
  Age: 43 Year
  Sex: Female

DRUGS (2)
  1. PRILOSEC [Suspect]
     Route: 048
  2. NEXIUM [Suspect]
     Route: 048

REACTIONS (6)
  - DRUG INEFFECTIVE [None]
  - NASOPHARYNGITIS [None]
  - COUGH [None]
  - OESOPHAGEAL ULCER [None]
  - GASTRIC ULCER HAEMORRHAGE [None]
  - OESOPHAGEAL ULCER HAEMORRHAGE [None]
